FAERS Safety Report 8615784-6 (Version None)
Quarter: 2012Q3

REPORT INFORMATION
  Report Type: 
  Country: None (occurrence: None)
  Receive Date: 20120823
  Receipt Date: 20120820
  Transmission Date: 20120928
  Serious: Yes (Other)
  Sender: FDA-Public Use
  Company Number: US-PFIZER INC-2012204703

PATIENT
  Age: 52 Year
  Sex: Female
  Weight: 147 kg

DRUGS (8)
  1. LIPITOR [Suspect]
     Indication: BLOOD CHOLESTEROL INCREASED
     Dosage: 80 MG,DAILY
     Route: 048
     Dates: start: 20110401
  2. METOPROLOL [Concomitant]
     Dosage: 100 MG, DAILY
  3. LIPITOR [Suspect]
     Dosage: 80 MG, ALTERNATE DAY
  4. RANEXA [Concomitant]
     Dosage: UNK
  5. LISINOPRIL [Concomitant]
     Indication: HYPERTENSION
     Dosage: 25 MG,DAILY
  6. PLAVIX [Concomitant]
     Dosage: 75 MG,DAILY
  7. NITROSTAT [Suspect]
     Indication: CHEST PAIN
     Dosage: UNK
     Dates: start: 20110101
  8. ASPIRIN [Concomitant]
     Indication: ANTICOAGULANT THERAPY
     Dosage: 325 MG, DAILY

REACTIONS (10)
  - CHEST PAIN [None]
  - GLUCOSE TOLERANCE IMPAIRED [None]
  - CORONARY ARTERY OCCLUSION [None]
  - OEDEMA [None]
  - MYOCARDIAL INFARCTION [None]
  - DEVICE OCCLUSION [None]
  - WEIGHT INCREASED [None]
  - DYSPNOEA [None]
  - INTENTIONAL DRUG MISUSE [None]
  - HEADACHE [None]
